FAERS Safety Report 9306101 (Version 2)
Quarter: 2013Q2

REPORT INFORMATION
  Report Type: Spontaneous
  Country: DE (occurrence: DE)
  Receive Date: 20130523
  Receipt Date: 20130614
  Transmission Date: 20140414
  Serious: No
  Sender: FDA-Public Use
  Company Number: DE-ELI_LILLY_AND_COMPANY-DE201305004424

PATIENT
  Sex: Male

DRUGS (6)
  1. CYMBALTA [Suspect]
     Indication: DEPRESSION
     Dosage: UNK UNK, BID
     Route: 048
     Dates: start: 20111209
  2. CYMBALTA [Suspect]
     Dosage: UNK UNK, QD
     Route: 048
  3. DELIX [Concomitant]
     Dosage: UNK, UNKNOWN
  4. LANTUS [Concomitant]
     Dosage: UNK, UNKNOWN
  5. DURAZEPAM [Concomitant]
     Dosage: UNK, UNKNOWN
  6. ADUMBRAN [Concomitant]
     Dosage: UNK, UNKNOWN

REACTIONS (4)
  - Haemorrhagic diathesis [Not Recovered/Not Resolved]
  - Blood glucose fluctuation [Not Recovered/Not Resolved]
  - Contusion [Unknown]
  - Blood cholesterol increased [Unknown]
